FAERS Safety Report 9751152 (Version 1)
Quarter: 2013Q4

REPORT INFORMATION
  Report Type: Spontaneous
  Country: US (occurrence: US)
  Receive Date: 20131212
  Receipt Date: 20131212
  Transmission Date: 20140711
  Serious: No
  Sender: FDA-Public Use
  Company Number: US-BIOGENIDEC-2013BI094254

PATIENT
  Sex: Female

DRUGS (12)
  1. TECFIDERA [Suspect]
     Indication: MULTIPLE SCLEROSIS
     Route: 048
     Dates: start: 20130628
  2. AMOXICILLIN [Concomitant]
  3. CALCIUM + D [Concomitant]
  4. DYAZIDE [Concomitant]
  5. FLUOXETINE HCL [Concomitant]
  6. FLUTICASONE PROPIONATE [Concomitant]
  7. GABAPENTIN [Concomitant]
  8. GINKGO BILOBA [Concomitant]
  9. LORATADINE [Concomitant]
  10. MELOXICAM [Concomitant]
  11. PRAMIPEXOLE DIHYDROCHLORIDE [Concomitant]
  12. PROVIGIL [Concomitant]

REACTIONS (2)
  - Hypoaesthesia [Unknown]
  - Pain in extremity [Unknown]
